FAERS Safety Report 23916793 (Version 1)
Quarter: 2024Q2

REPORT INFORMATION
  Report Type: Spontaneous
  Country: US (occurrence: US)
  Receive Date: 20240529
  Receipt Date: 20240529
  Transmission Date: 20240715
  Serious: Yes (Death)
  Sender: FDA-Public Use
  Company Number: US-LUNDBECK-DKLU3078641

PATIENT
  Age: 6 Year
  Sex: Female

DRUGS (1)
  1. SABRIL [Suspect]
     Active Substance: VIGABATRIN
     Indication: Epilepsy
     Dosage: 3 TABLETS IN THE MORNING, 4 TABLETS EVERY EVENING
     Route: 048

REACTIONS (2)
  - Death [Fatal]
  - Prescribed overdose [Unknown]
